FAERS Safety Report 18212169 (Version 3)
Quarter: 2020Q3

REPORT INFORMATION
  Report Type: Spontaneous
  Country: US (occurrence: US)
  Receive Date: 20200831
  Receipt Date: 20200915
  Transmission Date: 20201103
  Serious: Yes (Life-Threatening, Other)
  Sender: FDA-Public Use
  Company Number: US-PFIZER INC-2020332872

PATIENT
  Age: 21 Year
  Sex: Male

DRUGS (2)
  1. MANNITOL. [Suspect]
     Active Substance: MANNITOL
     Indication: GLAUCOMA
     Dosage: 1200 G (OVER 48 H)
     Route: 042
  2. ACETAZOLAMIDE SODIUM. [Concomitant]
     Active Substance: ACETAZOLAMIDE SODIUM
     Indication: ANGLE CLOSURE GLAUCOMA
     Dosage: 500 MG (EVERY SIX HOURS FOR 72 HOURS)

REACTIONS (9)
  - Nausea [Recovered/Resolved]
  - Osmolar gap increased [Recovered/Resolved]
  - Toxicity to various agents [Recovered/Resolved]
  - Acute kidney injury [Recovered/Resolved]
  - Hyponatraemia [Recovered/Resolved]
  - Vomiting [Recovered/Resolved]
  - Hyperkalaemia [Recovered/Resolved]
  - Fluid retention [Recovered/Resolved]
  - Mental status changes [Recovered/Resolved]
